FAERS Safety Report 7650239-7 (Version None)
Quarter: 2011Q3

REPORT INFORMATION
  Report Type: 
  Country: None (occurrence: None)
  Receive Date: 20110727
  Receipt Date: 20110719
  Transmission Date: 20111222
  Serious: Yes (Hospitalization, Disabling, Other)
  Sender: FDA-Public Use
  Company Number: ACO_25128_2011

PATIENT
  Age: 52 Year
  Sex: Female
  Weight: 64.9 kg

DRUGS (4)
  1. AMFETAMINE W/ DEXAMFETAMINE (AMFETAMINE, DEXAMFETAMINE) [Concomitant]
  2. AMPYRA [Suspect]
     Indication: GAIT DISTURBANCE
     Dosage: 10 MG, BID, ORAL
     Route: 048
     Dates: start: 20110501, end: 20110501
  3. COPAXONE [Concomitant]
  4. LEXAPRO (ESOPRAM OXALATE) [Concomitant]

REACTIONS (8)
  - APHASIA [None]
  - DISORIENTATION [None]
  - CONVULSION [None]
  - AMNESIA [None]
  - ABASIA [None]
  - LOSS OF CONSCIOUSNESS [None]
  - CONFUSIONAL STATE [None]
  - NO THERAPEUTIC RESPONSE [None]
